FAERS Safety Report 11198547 (Version 2)
Quarter: 2016Q2

REPORT INFORMATION
  Report Type: Report from Study
  Country: CA (occurrence: CA)
  Receive Date: 20150618
  Receipt Date: 20160404
  Transmission Date: 20160815
  Serious: Yes (Hospitalization)
  Sender: FDA-Public Use
  Company Number: CA-JNJFOC-20150112816

PATIENT
  Age: 39 Year
  Sex: Female
  Weight: 65 kg

DRUGS (9)
  1. REMICADE [Suspect]
     Active Substance: INFLIXIMAB
     Indication: COLITIS ULCERATIVE
     Route: 042
     Dates: start: 20141127
  2. LORATADINE. [Suspect]
     Active Substance: LORATADINE
     Indication: PREMEDICATION
     Dosage: 5 DAYS PRIOR TO INFUSION
     Route: 048
  3. HYDROCORTISONE. [Concomitant]
     Active Substance: HYDROCORTISONE
     Indication: PREMEDICATION
     Route: 042
  4. REMICADE [Suspect]
     Active Substance: INFLIXIMAB
     Indication: COLITIS ULCERATIVE
     Route: 042
     Dates: start: 20150612
  5. IRON [Concomitant]
     Active Substance: IRON
     Route: 048
  6. AERIUS [Concomitant]
     Active Substance: DESLORATADINE
     Indication: PREMEDICATION
     Route: 048
  7. REMICADE [Suspect]
     Active Substance: INFLIXIMAB
     Indication: COLITIS ULCERATIVE
     Route: 042
     Dates: start: 20160222
  8. VITAMIN D [Concomitant]
     Active Substance: CHOLECALCIFEROL
     Route: 048
  9. BENADRYL [Concomitant]
     Active Substance: DIPHENHYDRAMINE HYDROCHLORIDE
     Indication: PREMEDICATION
     Route: 042

REACTIONS (8)
  - Lupus-like syndrome [Unknown]
  - Pre-eclampsia [Recovered/Resolved]
  - Colitis ulcerative [Not Recovered/Not Resolved]
  - Product use issue [Unknown]
  - Exposure during pregnancy [Recovered/Resolved]
  - Skin discolouration [Not Recovered/Not Resolved]
  - Premature delivery [Recovered/Resolved]
  - Off label use [Unknown]

NARRATIVE: CASE EVENT DATE: 2015
